FAERS Safety Report 6017862-7 (Version None)
Quarter: 2008Q4

REPORT INFORMATION
  Report Type: 
  Country: None (occurrence: None)
  Receive Date: 20081223
  Receipt Date: 20081215
  Transmission Date: 20090506
  Serious: Yes (Other)
  Sender: FDA-Public Use
  Company Number: ES-MERCK-0812USA03561

PATIENT
  Age: 82 Year
  Sex: Female

DRUGS (8)
  1. SINEMET [Suspect]
     Indication: PARKINSON'S DISEASE
     Route: 065
     Dates: start: 20081009, end: 20081016
  2. FOSAMAX [Concomitant]
     Route: 048
  3. HEMOVAS [Concomitant]
     Route: 065
  4. HIDROFEROL [Concomitant]
     Route: 065
  5. HIDROFEROL [Concomitant]
     Route: 065
  6. MODOPAR [Concomitant]
     Route: 065
  7. ORFIDAL [Concomitant]
     Route: 065
  8. PAROXETINE HCL [Concomitant]
     Route: 065

REACTIONS (2)
  - HALLUCINATION [None]
  - MOBILITY DECREASED [None]
